FAERS Safety Report 20590245 (Version 12)
Quarter: 2023Q1

REPORT INFORMATION
  Report Type: Spontaneous
  Country: PL (occurrence: PL)
  Receive Date: 20220314
  Receipt Date: 20230110
  Transmission Date: 20230418
  Serious: Yes (Hospitalization, Disabling, Other)
  Sender: FDA-Public Use
  Company Number: PL-CELGENE-POL-20211205421

PATIENT
  Age: 77 Year
  Sex: Male

DRUGS (31)
  1. AZACITIDINE [Suspect]
     Active Substance: AZACITIDINE
     Indication: Acute myeloid leukaemia
     Dosage: 75 MILLIGRAM/SQ. METER, QD
     Route: 058
     Dates: start: 20210719
  2. AZACITIDINE [Suspect]
     Active Substance: AZACITIDINE
     Dosage: UNK
     Route: 065
     Dates: start: 20210720
  3. AZACITIDINE [Suspect]
     Active Substance: AZACITIDINE
     Dosage: UNK
     Route: 065
     Dates: start: 20210721
  4. AZACITIDINE [Suspect]
     Active Substance: AZACITIDINE
     Dosage: 75 MILLIGRAM/SQ. METER, QD
     Route: 058
     Dates: start: 20210719, end: 20220215
  5. AZACITIDINE [Suspect]
     Active Substance: AZACITIDINE
     Dosage: 75 MILLIGRAM/SQ. METER, QD
     Route: 058
     Dates: start: 20210719, end: 20210719
  6. PEVONEDISTAT [Suspect]
     Active Substance: PEVONEDISTAT
     Indication: Acute myeloid leukaemia
     Dosage: UNK
     Route: 065
     Dates: start: 20210719
  7. PEVONEDISTAT [Suspect]
     Active Substance: PEVONEDISTAT
     Dosage: UNK
     Route: 065
     Dates: start: 20210720, end: 20210720
  8. PEVONEDISTAT [Suspect]
     Active Substance: PEVONEDISTAT
     Dosage: UNK
     Route: 065
     Dates: start: 20210721
  9. PEVONEDISTAT [Suspect]
     Active Substance: PEVONEDISTAT
     Dosage: 75 MILLIGRAM/SQ. METER, QD
     Route: 065
  10. PEVONEDISTAT [Suspect]
     Active Substance: PEVONEDISTAT
     Dosage: 100 MILLIGRAM, QD
     Route: 048
     Dates: start: 20210719, end: 20210719
  11. PEVONEDISTAT [Suspect]
     Active Substance: PEVONEDISTAT
     Dosage: UNK,28 UNKNOWN DURIATION OD ADMINISTRATIO
     Route: 065
  12. VENETOCLAX [Suspect]
     Active Substance: VENETOCLAX
     Indication: Acute myeloid leukaemia
     Dosage: 100 MILLIGRAM
     Route: 048
     Dates: start: 20210719, end: 20220227
  13. VENETOCLAX [Suspect]
     Active Substance: VENETOCLAX
     Dosage: 200 MILLIGRAM,FREQUENCY TEXT: NOT PROVIDED
     Route: 048
     Dates: start: 20210720, end: 20211230
  14. VENETOCLAX [Suspect]
     Active Substance: VENETOCLAX
     Dosage: 400 MILLIGRAM
     Route: 048
     Dates: start: 20210721, end: 20211003
  15. VENETOCLAX [Suspect]
     Active Substance: VENETOCLAX
     Dosage: 200 MILLIGRAM,FREQUENCY TEXT: NOT PROVIDED
     Route: 048
     Dates: start: 20211018
  16. VENETOCLAX [Suspect]
     Active Substance: VENETOCLAX
     Dosage: 400 MILLIGRAM
     Route: 048
     Dates: start: 20211018
  17. VENETOCLAX [Suspect]
     Active Substance: VENETOCLAX
     Dosage: 400 MILLIGRAM
     Route: 048
     Dates: start: 20210721, end: 20210721
  18. VENETOCLAX [Suspect]
     Active Substance: VENETOCLAX
     Dosage: 200MG, FREQUENCY TEXT: NOT PROVIDED200 MILLIGRAM
     Route: 048
     Dates: start: 20210720, end: 20210720
  19. VENETOCLAX [Suspect]
     Active Substance: VENETOCLAX
     Dosage: 100 MILLIGRAM,FREQUENCY TEXT: NOT PROVIDED100 MILLIGRAM
     Route: 048
     Dates: start: 20210720, end: 20210720
  20. VENETOCLAX [Suspect]
     Active Substance: VENETOCLAX
     Dosage: 400 MILLIGRAM
     Route: 048
     Dates: start: 20210721, end: 20211003
  21. VENETOCLAX [Suspect]
     Active Substance: VENETOCLAX
     Dosage: 100 MILLIGRAM
     Route: 065
     Dates: start: 20220207
  22. AZACITIDINE [Suspect]
     Active Substance: AZACITIDINE
     Indication: Acute myeloid leukaemia
     Dosage: 75 UNK
     Route: 048
     Dates: start: 20210719
  23. PEVONEDISTAT [Suspect]
     Active Substance: PEVONEDISTAT
     Indication: Acute myeloid leukaemia
     Dosage: 75 MILLIGRAM,6 UNKNOWN DURIATION OF ADMINISTRATION
     Route: 058
     Dates: end: 20220215
  24. METOPROLOL TARTRATE [Concomitant]
     Active Substance: METOPROLOL TARTRATE
     Indication: Hypertension
     Dosage: UNK
     Route: 065
  25. OMEPRAZOLE [Concomitant]
     Active Substance: OMEPRAZOLE
     Indication: Gastritis
     Dosage: UNK,FREQUENCY TEXT: NOT PROVIDED
     Route: 065
     Dates: start: 202106
  26. ACYCLOVIR [Concomitant]
     Active Substance: ACYCLOVIR
     Indication: Infection prophylaxis
     Dosage: UNK
     Route: 065
     Dates: start: 202106
  27. ATORVASTATIN CALCIUM [Concomitant]
     Active Substance: ATORVASTATIN CALCIUM
     Indication: Hypercholesterolaemia
     Dosage: UNK
     Route: 065
  28. INDAPAMIDE [Concomitant]
     Active Substance: INDAPAMIDE
     Indication: Hypertension
     Dosage: UNK
     Route: 065
  29. METOPROLOL [Concomitant]
     Active Substance: METOPROLOL
     Indication: Hypertension
     Dosage: UNK,FREQUENCY TEXT: NOT PROVIDED
     Route: 065
  30. ATORVASTATIN [Concomitant]
     Active Substance: ATORVASTATIN
     Indication: Hypercholesterolaemia
     Dosage: UNK,FREQUENCY TEXT: NOT PROVIDED
     Route: 065
  31. ACYCLOVIR [Concomitant]
     Active Substance: ACYCLOVIR
     Indication: Infection prophylaxis
     Dosage: UNK,FREQUENCY TEXT: NOT PROVIDED
     Route: 065
     Dates: start: 202106

REACTIONS (7)
  - Laboratory test abnormal [Unknown]
  - Haemoglobin abnormal [Recovered/Resolved]
  - Platelet disorder [Recovered/Resolved]
  - Platelet count abnormal [Recovered/Resolved]
  - Thrombocytopenia [Recovering/Resolving]
  - Respiratory tract infection [Recovering/Resolving]
  - Anaemia [Recovered/Resolved]

NARRATIVE: CASE EVENT DATE: 20211215
